FAERS Safety Report 4669014-0 (Version None)
Quarter: 2005Q2

REPORT INFORMATION
  Report Type: 
  Country: None (occurrence: None)
  Receive Date: 20050523
  Receipt Date: 20040719
  Transmission Date: 20051028
  Serious: Yes (Other)
  Sender: FDA-Public Use
  Company Number: PHBS2004IT09820

PATIENT
  Age: 70 Year
  Sex: Female

DRUGS (5)
  1. ZOMETA [Suspect]
     Indication: METASTASES TO BONE
     Dosage: 4 MG/MONTH
     Route: 042
     Dates: start: 20020101, end: 20040304
  2. GEMCITABINE [Concomitant]
  3. PLATINUM COMPOUNDS [Concomitant]
  4. TAXANES [Concomitant]
  5. HERCEPTIN [Concomitant]
     Dosage: 6 MG/KG/D
     Route: 042

REACTIONS (2)
  - DENTAL TREATMENT [None]
  - OSTEONECROSIS [None]
